FAERS Safety Report 12466568 (Version 1)
Quarter: 2016Q2

REPORT INFORMATION
  Report Type: Report from Study
  Country: BR (occurrence: BR)
  Receive Date: 20160615
  Receipt Date: 20160615
  Transmission Date: 20160815
  Serious: Yes (Hospitalization, Other)
  Sender: FDA-Public Use
  Company Number: US-ASTRAZENECA-2016SE53193

PATIENT
  Age: 1 Year
  Sex: Female
  Weight: 3.8 kg

DRUGS (4)
  1. SYNAGIS [Suspect]
     Active Substance: PALIVIZUMAB
     Indication: HEART DISEASE CONGENITAL
     Dosage: 15.0MG/KG UNKNOWN
     Route: 030
     Dates: start: 20160411
  2. FUROSEMIDE. [Concomitant]
     Active Substance: FUROSEMIDE
     Indication: PRODUCT USED FOR UNKNOWN INDICATION
     Route: 048
     Dates: start: 201511
  3. CAPTOPRIL. [Concomitant]
     Active Substance: CAPTOPRIL
     Indication: HYPERTENSION
     Route: 048
     Dates: start: 201511
  4. SYNAGIS [Suspect]
     Active Substance: PALIVIZUMAB
     Indication: HEART DISEASE CONGENITAL
     Dosage: 15.0MG/KG UNKNOWN
     Route: 030
     Dates: start: 20160408

REACTIONS (13)
  - Laryngeal stenosis [Recovering/Resolving]
  - Diarrhoea [Recovered/Resolved]
  - Apnoea [Not Recovered/Not Resolved]
  - Inflammation [Unknown]
  - Snoring [Not Recovered/Not Resolved]
  - Fatigue [Not Recovered/Not Resolved]
  - Laryngitis [Recovered/Resolved]
  - Dyspnoea [Unknown]
  - Laryngeal stenosis [Recovered/Resolved]
  - Gastrooesophageal reflux disease [Recovered/Resolved]
  - Lactose intolerance [Recovered/Resolved]
  - Increased bronchial secretion [Unknown]
  - Wheezing [Not Recovered/Not Resolved]

NARRATIVE: CASE EVENT DATE: 2016
